FAERS Safety Report 19974322 (Version 1)
Quarter: 2021Q4

REPORT INFORMATION
  Report Type: Spontaneous
  Country: US (occurrence: US)
  Receive Date: 20211020
  Receipt Date: 20211020
  Transmission Date: 20220303
  Serious: No
  Sender: FDA-Public Use
  Company Number: 2021A770438

PATIENT

DRUGS (1)
  1. CRESTOR [Suspect]
     Active Substance: ROSUVASTATIN CALCIUM
     Indication: Blood cholesterol increased
     Dosage: 10.0MG UNKNOWN
     Route: 048

REACTIONS (7)
  - Constipation [Unknown]
  - Poor quality sleep [Unknown]
  - Fatigue [Unknown]
  - Loss of consciousness [Unknown]
  - Abdominal pain [Unknown]
  - Dizziness [Unknown]
  - Confusional state [Unknown]
